FAERS Safety Report 4810598-7 (Version None)
Quarter: 2005Q4

REPORT INFORMATION
  Report Type: 
  Country: None (occurrence: None)
  Receive Date: 20051024
  Receipt Date: 20051014
  Transmission Date: 20060501
  Serious: Yes (Other)
  Sender: FDA-Public Use
  Company Number: 2005142743

PATIENT
  Age: 50 Year
  Sex: Male
  Weight: 81.6475 kg

DRUGS (9)
  1. LYRICA [Suspect]
     Indication: NEURALGIA
     Dosage: 300 MG (150 MG, 2 IN 1 D), ORAL
     Route: 048
     Dates: start: 20050930, end: 20051001
  2. PAXIL [Concomitant]
  3. VERAPAMIL [Concomitant]
  4. AMBIEN [Concomitant]
  5. BACTROBAN CREAM (MUPIROCIN) [Concomitant]
  6. FOSAMAX [Concomitant]
  7. VICODIN [Concomitant]
  8. TRAZODONE HCL [Concomitant]
  9. LAMICTAL [Concomitant]

REACTIONS (1)
  - CLONIC CONVULSION [None]
